FAERS Safety Report 12058278 (Version 1)
Quarter: 2016Q1

REPORT INFORMATION
  Report Type: Spontaneous
  Country: FR (occurrence: FR)
  Receive Date: 20160210
  Receipt Date: 20160210
  Transmission Date: 20160526
  Serious: Yes (Hospitalization)
  Sender: FDA-Public Use
  Company Number: FR-ASTRAZENECA-2016SE12515

PATIENT
  Age: 62 Year
  Sex: Female

DRUGS (3)
  1. CODOLIPRANE [Suspect]
     Active Substance: ACETAMINOPHEN\CODEINE PHOSPHATE
     Indication: SCIATICA
     Dosage: 2-3 TABLETS PER DAY
     Route: 048
     Dates: start: 20151106, end: 20151114
  2. INEXIUM [Suspect]
     Active Substance: ESOMEPRAZOLE
     Route: 048
     Dates: start: 20151106, end: 20151114
  3. BIPROFENID [Suspect]
     Active Substance: KETOPROFEN
     Route: 048
     Dates: start: 20151106, end: 20151114

REACTIONS (3)
  - Syncope [Recovered/Resolved with Sequelae]
  - Fall [Recovered/Resolved with Sequelae]
  - Wrist fracture [Recovered/Resolved with Sequelae]

NARRATIVE: CASE EVENT DATE: 20151114
